FAERS Safety Report 18451491 (Version 1)
Quarter: 2020Q4

REPORT INFORMATION
  Report Type: Spontaneous
  Country: JP (occurrence: JP)
  Receive Date: 20201102
  Receipt Date: 20201102
  Transmission Date: 20210114
  Serious: Yes (Other)
  Sender: FDA-Public Use
  Company Number: NVSC2020JP290040

PATIENT
  Age: 48 Year
  Sex: Male

DRUGS (6)
  1. EVEROLIMUS. [Suspect]
     Active Substance: EVEROLIMUS
     Indication: METASTASES TO MUSCLE
  2. AXITINIB [Suspect]
     Active Substance: AXITINIB
     Indication: METASTASES TO LUNG
     Dosage: UNK
     Route: 065
  3. SUNITINIB [Suspect]
     Active Substance: SUNITINIB
     Indication: METASTASES TO MUSCLE
  4. EVEROLIMUS. [Suspect]
     Active Substance: EVEROLIMUS
     Indication: METASTASES TO LUNG
     Dosage: UNK
     Route: 065
  5. AXITINIB [Suspect]
     Active Substance: AXITINIB
     Indication: METASTASES TO MUSCLE
  6. SUNITINIB [Suspect]
     Active Substance: SUNITINIB
     Indication: METASTASES TO LUNG
     Dosage: UNK
     Route: 048
     Dates: start: 201512

REACTIONS (2)
  - Metastases to skin [Recovered/Resolved]
  - Metastases to heart [Recovered/Resolved]

NARRATIVE: CASE EVENT DATE: 201704
